FAERS Safety Report 7926762-4 (Version None)
Quarter: 2011Q4

REPORT INFORMATION
  Report Type: 
  Country: None (occurrence: None)
  Receive Date: 20111118
  Receipt Date: 20111107
  Transmission Date: 20120403
  Serious: Yes (Hospitalization, Other)
  Sender: FDA-Public Use
  Company Number: US-BAYER-2011-081917

PATIENT
  Age: 31 Year
  Sex: Female
  Weight: 90.249 kg

DRUGS (16)
  1. TRICOR [Concomitant]
     Dosage: UNK
     Dates: start: 20080501, end: 20080801
  2. ANTIDEPRESSANTS [Concomitant]
  3. YAZ [Suspect]
     Indication: PREMENSTRUAL SYNDROME
     Dosage: UNK
     Route: 048
     Dates: start: 20080301, end: 20080701
  4. MULTI-VITAMIN [Concomitant]
     Dosage: UNK
     Dates: start: 20080417
  5. DROSPIRENONE AND ETHINYL ESTRADIOL [Suspect]
     Indication: PREMENSTRUAL SYNDROME
     Dosage: UNK
     Route: 048
     Dates: start: 20080720, end: 20080816
  6. AMOXICILLIN [Concomitant]
     Dosage: 875 MG, BID
     Dates: end: 20080417
  7. ZOLOFT [Concomitant]
     Dosage: 100 MG, UNK
  8. TRICOR [Concomitant]
     Dosage: UNK
     Dates: start: 20080902, end: 20081028
  9. DROSPIRENONE AND ETHINYL ESTRADIOL [Suspect]
     Dosage: UNK
     Dates: start: 20080908, end: 20081005
  10. BUPROPION HCL [Concomitant]
     Dosage: 150 MG, UNK
     Dates: start: 20080417
  11. MERIDIA [Concomitant]
     Dosage: 10 MG, UNK
     Dates: start: 20080417
  12. CALCIUM VIT D [Concomitant]
     Dosage: UNK
     Dates: start: 20080417
  13. FLUCONAZOLE [Concomitant]
     Dosage: 150 MG, UNK
     Dates: end: 20080417
  14. YASMIN [Suspect]
     Indication: PREMENSTRUAL SYNDROME
     Dosage: UNK
     Route: 048
     Dates: start: 20080407, end: 20080506
  15. POTASSIUM CHLORIDE [Concomitant]
     Dosage: 20 MEQ, UNK
     Dates: start: 20080417, end: 20080528
  16. CAMILA [Concomitant]
     Dosage: 0.35 MG, UNK
     Dates: end: 20080417

REACTIONS (4)
  - INJURY [None]
  - PANCREATITIS ACUTE [None]
  - ABDOMINAL PAIN [None]
  - PANCREATITIS RELAPSING [None]
